FAERS Safety Report 22061383 (Version 1)
Quarter: 2023Q1

REPORT INFORMATION
  Report Type: Spontaneous
  Country: US (occurrence: US)
  Receive Date: 20230304
  Receipt Date: 20230304
  Transmission Date: 20230417
  Serious: Yes (Other)
  Sender: FDA-Public Use
  Company Number: US-AUROBINDO-AUR-APL-2023-009062

PATIENT
  Age: 49 Year
  Sex: Male

DRUGS (12)
  1. FLUCONAZOLE [Suspect]
     Active Substance: FLUCONAZOLE
     Indication: Sepsis
     Dosage: UNK
     Route: 042
     Dates: start: 20170624
  2. FLUCONAZOLE [Suspect]
     Active Substance: FLUCONAZOLE
     Indication: Sepsis
     Dosage: 800 MILLIGRAM, DAILY
     Route: 048
     Dates: start: 20170808, end: 20170917
  3. FLUCYTOSINE [Suspect]
     Active Substance: FLUCYTOSINE
     Indication: Product used for unknown indication
     Dosage: UNK
     Route: 048
     Dates: start: 20200317, end: 20200428
  4. MICAFUNGIN [Suspect]
     Active Substance: MICAFUNGIN
     Indication: Product used for unknown indication
     Dosage: UNK
     Route: 042
     Dates: start: 20170627
  5. MICAFUNGIN [Suspect]
     Active Substance: MICAFUNGIN
     Dosage: UNK
     Route: 042
     Dates: start: 20191101
  6. MICAFUNGIN [Suspect]
     Active Substance: MICAFUNGIN
     Dosage: UNK
     Route: 042
     Dates: start: 20200226
  7. AMPHOTERICIN B [Suspect]
     Active Substance: AMPHOTERICIN B
     Indication: Product used for unknown indication
     Dosage: UNK
     Route: 042
     Dates: start: 20191122, end: 20200428
  8. POSACONAZOLE [Suspect]
     Active Substance: POSACONAZOLE
     Indication: Product used for unknown indication
     Dosage: UNK
     Route: 048
     Dates: start: 20200108
  9. PIPERACILLIN SODIUM\TAZOBACTAM SODIUM [Concomitant]
     Active Substance: PIPERACILLIN SODIUM\TAZOBACTAM SODIUM
     Indication: Product used for unknown indication
     Dosage: UNK
     Route: 042
  10. REZAFUNGIN [Concomitant]
     Active Substance: REZAFUNGIN
     Indication: Product used for unknown indication
     Dosage: 400 MILLIGRAM
     Route: 042
     Dates: start: 202005
  11. REZAFUNGIN [Concomitant]
     Active Substance: REZAFUNGIN
     Dosage: 200 MILLIGRAM, EVERY WEEK
     Route: 042
  12. VANCOMYCIN [Concomitant]
     Active Substance: VANCOMYCIN
     Indication: Product used for unknown indication
     Dosage: UNK
     Route: 042

REACTIONS (2)
  - Nephropathy toxic [Unknown]
  - Drug resistance [Unknown]
